FAERS Safety Report 4659622-5 (Version None)
Quarter: 2005Q2

REPORT INFORMATION
  Report Type: 
  Country: None (occurrence: None)
  Receive Date: 20050411
  Receipt Date: 20050106
  Transmission Date: 20051028
  Serious: Yes (Other)
  Sender: FDA-Public Use
  Company Number: 391979

PATIENT
  Age: 44 Year
  Sex: Male
  Weight: 82.6 kg

DRUGS (2)
  1. FUZEON [Suspect]
     Indication: HIV INFECTION
     Dosage: 90 MG 2 PER DAY SUBCUTANEOUS
     Route: 058
     Dates: start: 20030601, end: 20040915
  2. ANTIRETROVIRAL NOS (ANTIRETROVIRAL NOS) [Concomitant]

REACTIONS (7)
  - ABDOMINAL PAIN [None]
  - ADVERSE EVENT [None]
  - BLOOD BLISTER [None]
  - CONTUSION [None]
  - FURUNCLE [None]
  - INJECTION SITE REACTION [None]
  - SKIN DISORDER [None]
